FAERS Safety Report 9140679 (Version 1)
Quarter: 2013Q1

REPORT INFORMATION
  Report Type: Spontaneous
  Country: JP (occurrence: JP)
  Receive Date: 20130305
  Receipt Date: 20130305
  Transmission Date: 20140127
  Serious: Yes (Hospitalization)
  Sender: FDA-Public Use
  Company Number: JP-GLAXOSMITHKLINE-B0871550A

PATIENT
  Age: 93 Year
  Sex: Female

DRUGS (8)
  1. VALTREX [Suspect]
     Indication: HERPES ZOSTER
     Dosage: 1000MG THREE TIMES PER DAY
     Route: 048
     Dates: start: 20130222, end: 20130224
  2. BRUFEN [Concomitant]
     Route: 048
  3. METHYCOBAL [Concomitant]
     Route: 065
  4. AMLODIPINE [Concomitant]
     Route: 048
  5. DONEPEZIL HYDROCHLORIDE [Concomitant]
     Route: 048
  6. MAGNESIUM OXIDE [Concomitant]
     Route: 048
  7. BIOFERMIN [Concomitant]
     Route: 048
  8. SEDAGASTON [Concomitant]
     Route: 048

REACTIONS (4)
  - Renal failure acute [Not Recovered/Not Resolved]
  - Dysarthria [Not Recovered/Not Resolved]
  - Nausea [Not Recovered/Not Resolved]
  - Overdose [Unknown]
